FAERS Safety Report 26032755 (Version 1)
Quarter: 2025Q4

REPORT INFORMATION
  Report Type: Spontaneous
  Country: US (occurrence: US)
  Receive Date: 20251112
  Receipt Date: 20251112
  Transmission Date: 20260118
  Serious: Yes (Other)
  Sender: BAXTER
  Company Number: US-MLMSERVICE-20251030-PI694275-00175-1

PATIENT
  Age: 27 Year
  Sex: Female

DRUGS (1)
  1. HEPARIN SODIUM [Suspect]
     Active Substance: HEPARIN SODIUM
     Indication: Anticoagulant therapy
     Dosage: CONTINUOUS HEPARIN
     Route: 065

REACTIONS (5)
  - Haematemesis [Unknown]
  - Intra-abdominal haematoma [Unknown]
  - Acute kidney injury [Unknown]
  - Cardiac failure [Unknown]
  - Pleural effusion [Unknown]
